FAERS Safety Report 14232436 (Version 1)
Quarter: 2017Q4

REPORT INFORMATION
  Report Type: Spontaneous
  Country: US (occurrence: None)
  Receive Date: 20171128
  Receipt Date: 20171128
  Transmission Date: 20180321
  Serious: No
  Sender: FDA-Public Use
  Company Number: None

PATIENT
  Sex: Female
  Weight: 61.23 kg

DRUGS (1)
  1. NUVARING [Suspect]
     Active Substance: ETHINYL ESTRADIOL\ETONOGESTREL
     Indication: CONTRACEPTION
     Dosage: EVERY 28 DAYS VAGINAL?
     Route: 067
     Dates: start: 20171109, end: 20171126

REACTIONS (5)
  - Cervicitis [None]
  - Dyspareunia [None]
  - Cervix haemorrhage uterine [None]
  - Sexually transmitted disease [None]
  - Uterine cervical pain [None]

NARRATIVE: CASE EVENT DATE: 20171127
